FAERS Safety Report 19242993 (Version 2)
Quarter: 2021Q3

REPORT INFORMATION
  Report Type: Spontaneous
  Country: US (occurrence: US)
  Receive Date: 20210510
  Receipt Date: 20210916
  Transmission Date: 20211014
  Serious: Yes (Hospitalization, Other)
  Sender: FDA-Public Use
  Company Number: US-DRREDDYS-USA/USA/21/0135258

PATIENT
  Age: 57 Year
  Sex: Male

DRUGS (5)
  1. LEVETIRACETAM. [Suspect]
     Active Substance: LEVETIRACETAM
     Indication: SEIZURE PROPHYLAXIS
  2. LEVETIRACETAM. [Suspect]
     Active Substance: LEVETIRACETAM
  3. APIXABAN [Concomitant]
     Active Substance: APIXABAN
     Indication: ILIAC VEIN STENOSIS
  4. DEXAMETHASONE SODIUM PHOSPHATE. [Concomitant]
     Active Substance: DEXAMETHASONE SODIUM PHOSPHATE
     Indication: SEIZURE PROPHYLAXIS
  5. HEPARIN SODIUM. [Concomitant]
     Active Substance: HEPARIN SODIUM
     Indication: VASCULAR STENT THROMBOSIS

REACTIONS (1)
  - Pancytopenia [Recovering/Resolving]
